FAERS Safety Report 24958243 (Version 2)
Quarter: 2025Q1

REPORT INFORMATION
  Report Type: Spontaneous
  Country: US (occurrence: US)
  Receive Date: 20250212
  Receipt Date: 20250303
  Transmission Date: 20250409
  Serious: No
  Sender: APOTEX
  Company Number: US-APOTEX-2025AP002010

PATIENT
  Age: 44 Year
  Sex: Male

DRUGS (7)
  1. DOXYCYCLINE [Suspect]
     Active Substance: DOXYCYCLINE
     Indication: Hidradenitis
     Dosage: 100 MILLIGRAM, BID
     Route: 065
     Dates: start: 20210326, end: 20210426
  2. DOXYCYCLINE [Suspect]
     Active Substance: DOXYCYCLINE
     Dosage: 100 MILLIGRAM, BID
     Route: 065
     Dates: start: 20210528, end: 20210820
  3. BENZOYL PEROXIDE [Suspect]
     Active Substance: BENZOYL PEROXIDE
     Indication: Hidradenitis
     Route: 065
     Dates: start: 20210326, end: 20210426
  4. BENZOYL PEROXIDE [Suspect]
     Active Substance: BENZOYL PEROXIDE
     Route: 065
     Dates: start: 20210528, end: 20210820
  5. CLINDAMYCIN [Suspect]
     Active Substance: CLINDAMYCIN
     Indication: Hidradenitis
     Dosage: UNK, BID
     Route: 061
     Dates: start: 20210326, end: 20210426
  6. CLINDAMYCIN [Suspect]
     Active Substance: CLINDAMYCIN
     Dosage: UNK, BID
     Route: 061
     Dates: start: 20210528, end: 20210820
  7. NIVOLUMAB [Concomitant]
     Active Substance: NIVOLUMAB
     Indication: Metastatic renal cell carcinoma
     Route: 065

REACTIONS (1)
  - Treatment noncompliance [Unknown]

NARRATIVE: CASE EVENT DATE: 20210426
